FAERS Safety Report 7571422-5 (Version None)
Quarter: 2011Q2

REPORT INFORMATION
  Report Type: 
  Country: None (occurrence: None)
  Receive Date: 20110624
  Receipt Date: 20110603
  Transmission Date: 20111010
  Serious: Yes (Other)
  Sender: FDA-Public Use
  Company Number: PHHY2011BR49681

PATIENT
  Sex: Female

DRUGS (2)
  1. SIMVASTATIN [Suspect]
     Dosage: 20 MG
     Route: 048
  2. DIOVAN [Concomitant]
     Dosage: UNK
     Route: 048

REACTIONS (4)
  - CEREBROVASCULAR ACCIDENT [None]
  - FEAR OF FALLING [None]
  - THROMBOSIS [None]
  - PALPITATIONS [None]
